FAERS Safety Report 8384185-0 (Version None)
Quarter: 2012Q2

REPORT INFORMATION
  Report Type: 
  Country: None (occurrence: None)
  Receive Date: 20120524
  Receipt Date: 20001128
  Transmission Date: 20120825
  Serious: Yes (Other)
  Sender: FDA-Public Use
  Company Number: US-ROCHE-250184

PATIENT
  Age: 28 Year
  Sex: Female
  Weight: 59 kg

DRUGS (1)
  1. ACCUTANE [Suspect]
     Indication: ACNE
     Route: 048
     Dates: start: 19920429, end: 19920629

REACTIONS (6)
  - MAJOR DEPRESSION [None]
  - NAUSEA [None]
  - VOMITING [None]
  - HEPATIC ENZYME ABNORMAL [None]
  - SUICIDAL IDEATION [None]
  - MIGRAINE [None]
